FAERS Safety Report 24797621 (Version 1)
Quarter: 2025Q1

REPORT INFORMATION
  Report Type: Spontaneous
  Country: US (occurrence: US)
  Receive Date: 20250102
  Receipt Date: 20250102
  Transmission Date: 20250408
  Serious: No
  Sender: APOTEX
  Company Number: US-APOTEX-2024AP019486

PATIENT
  Age: 10 Year
  Sex: Female
  Weight: 39.1 kg

DRUGS (5)
  1. CIMETIDINE [Suspect]
     Active Substance: CIMETIDINE
     Indication: Skin papilloma
     Dosage: 30 MILLIGRAM/KILOGRAM, QD
     Route: 048
  2. MOMETASONE [Concomitant]
     Active Substance: MOMETASONE
     Indication: Dermatitis atopic
     Route: 061
  3. HYDROCORTISONE [Concomitant]
     Active Substance: HYDROCORTISONE
     Indication: Dermatitis atopic
     Route: 061
  4. DUPILUMAB [Concomitant]
     Active Substance: DUPILUMAB
     Indication: Dermatitis atopic
     Route: 058
  5. DUPILUMAB [Concomitant]
     Active Substance: DUPILUMAB
     Dosage: 200 MILLIGRAM, Q.O.WK.
     Route: 058

REACTIONS (3)
  - Condition aggravated [Recovered/Resolved]
  - Haemorrhage [Recovered/Resolved]
  - Treatment noncompliance [Unknown]
